FAERS Safety Report 4297175-4 (Version None)
Quarter: 2004Q1

REPORT INFORMATION
  Report Type: 
  Country: None (occurrence: None)
  Receive Date: 20040213
  Receipt Date: 20040119
  Transmission Date: 20041129
  Serious: Yes (Other)
  Sender: FDA-Public Use
  Company Number: SUS1-2004-00071

PATIENT
  Age: 24 Year
  Sex: Male

DRUGS (4)
  1. ADDERALL XR 60 [Suspect]
     Indication: ATTENTION DEFICIT/HYPERACTIVITY DISORDER
     Dosage: 30 MG DAILY, ORAL
     Route: 048
     Dates: end: 20040115
  2. VALIUM /NET/(DIAZEPAM) [Suspect]
  3. UNSPECIFIED PAIN MEDICATION() [Suspect]
  4. MARIJUANA(MARIJUANA) [Suspect]

REACTIONS (6)
  - ABNORMAL BEHAVIOUR [None]
  - DRUG ABUSER [None]
  - HALLUCINATION [None]
  - LEGAL PROBLEM [None]
  - PSYCHOTIC DISORDER [None]
  - THINKING ABNORMAL [None]
